FAERS Safety Report 4450225-4 (Version None)
Quarter: 2004Q3

REPORT INFORMATION
  Report Type: 
  Country: None (occurrence: None)
  Receive Date: 20040914
  Receipt Date: 20040830
  Transmission Date: 20050211
  Serious: Yes (Other)
  Sender: FDA-Public Use
  Company Number: 2004230705NL

PATIENT
  Age: 80 Year
  Sex: Female

DRUGS (2)
  1. SOMAVERT [Suspect]
     Indication: ACROMEGALY
  2. SANDOSTATIN (OCTREOTIDE ACETAE) [Concomitant]

REACTIONS (1)
  - NEOPLASM PROGRESSION [None]
